FAERS Safety Report 23991063 (Version 2)
Quarter: 2024Q3

REPORT INFORMATION
  Report Type: Spontaneous
  Country: US (occurrence: US)
  Receive Date: 20240619
  Receipt Date: 20240705
  Transmission Date: 20241016
  Serious: Yes (Hospitalization)
  Sender: CALLIDITAS THERAPEUTICS
  Company Number: US-Calliditas-2024CAL01079

PATIENT
  Age: 54 Year
  Sex: Male
  Weight: 107.9 kg

DRUGS (1)
  1. TARPEYO [Suspect]
     Active Substance: BUDESONIDE
     Indication: IgA nephropathy
     Route: 048
     Dates: start: 20240309

REACTIONS (3)
  - Hospitalisation [Unknown]
  - Haemorrhoids [Unknown]
  - Product dose omission issue [Unknown]
